FAERS Safety Report 8979576 (Version 2)
Quarter: 2012Q4

REPORT INFORMATION
  Report Type: Report from Study
  Country: JP (occurrence: JP)
  Receive Date: 20121221
  Receipt Date: 20121228
  Transmission Date: 20130627
  Serious: Yes (Other)
  Sender: FDA-Public Use
  Company Number: JP-UCBSA-072036

PATIENT
  Age: 39 Year
  Sex: Female
  Weight: 84.6 kg

DRUGS (9)
  1. CERTOLIZUMAB PEGOL [Suspect]
     Indication: RHEUMATOID ARTHRITIS
     Route: 058
     Dates: start: 20110414, end: 20121113
  2. CERTOLIZUMAB PEGOL [Suspect]
     Indication: RHEUMATOID ARTHRITIS
     Dosage: PREVIOUS STUDY: RA0007
     Route: 058
     Dates: start: 20100318
  3. CERTOLIZUMAB PEGOL [Suspect]
     Indication: RHEUMATOID ARTHRITIS
     Dosage: PREVIOUS STUDY: RA0006
     Route: 058
     Dates: start: 20090903
  4. CELECOXIB [Suspect]
     Indication: RHEUMATOID ARTHRITIS
     Route: 048
     Dates: start: 20121123
  5. SALAZOSULFAPYRIDINE [Suspect]
     Indication: RHEUMATOID ARTHRITIS
     Route: 048
     Dates: start: 20090724
  6. CIMETIDINE [Suspect]
     Indication: GASTRITIS PROPHYLAXIS
     Route: 048
     Dates: start: 20121123
  7. PRANLUKAST [Suspect]
     Indication: ASTHMA
     Route: 048
     Dates: start: 20090803
  8. EBASTINE [Suspect]
     Indication: ALLERGY PROPHYLAXIS
     Route: 048
     Dates: start: 20110216
  9. KETOPROFEN [Concomitant]
     Indication: RHEUMATOID ARTHRITIS
     Dosage: Q.S.
     Route: 062
     Dates: start: 20121123

REACTIONS (3)
  - Abortion spontaneous [Recovered/Resolved]
  - Pregnancy [Recovered/Resolved]
  - Exposure during pregnancy [None]
